FAERS Safety Report 17841421 (Version 1)
Quarter: 2020Q2

REPORT INFORMATION
  Report Type: Spontaneous
  Country: US (occurrence: US)
  Receive Date: 20200529
  Receipt Date: 20200529
  Transmission Date: 20200714
  Serious: No
  Sender: FDA-Public Use
  Company Number: US-ASTRAZENECA-2020SE60504

PATIENT
  Age: 16480 Day
  Sex: Female
  Weight: 88.5 kg

DRUGS (9)
  1. SYMBICORT [Suspect]
     Active Substance: BUDESONIDE\FORMOTEROL FUMARATE DIHYDRATE
     Indication: ASTHMA
     Dosage: 3 PUFFS TWO TIMES A DAY
     Route: 055
     Dates: start: 20200429
  2. COMBIVENT RESPIMAT [Concomitant]
     Active Substance: ALBUTEROL SULFATE\IPRATROPIUM BROMIDE
     Indication: CHEST DISCOMFORT
     Dosage: 20MCG/100MCG/ACTUATION AS REQUIRED
     Route: 055
     Dates: start: 2020
  3. IPRAPROPIUM [Concomitant]
     Indication: CHEST DISCOMFORT
     Dosage: 0.5 MG/3MG/3ML EVERY 5-6 HOURS AS REQUIRED
     Route: 055
     Dates: start: 202001
  4. IPRAPROPIUM [Concomitant]
     Indication: WHEEZING
     Dosage: 0.5 MG/3MG/3ML EVERY 5-6 HOURS AS REQUIRED
     Route: 055
     Dates: start: 202001
  5. COMBIVENT RESPIMAT [Concomitant]
     Active Substance: ALBUTEROL SULFATE\IPRATROPIUM BROMIDE
     Indication: ASTHMA
     Dosage: 20MCG/100MCG/ACTUATION AS REQUIRED
     Route: 055
     Dates: start: 2020
  6. VENTOLIN [Concomitant]
     Active Substance: ALBUTEROL SULFATE
     Indication: ASTHMA
     Dosage: 90.0UG AS REQUIRED
  7. SYMBICORT [Suspect]
     Active Substance: BUDESONIDE\FORMOTEROL FUMARATE DIHYDRATE
     Indication: ASTHMA
     Dosage: 80/4.5 MCG 2 PUFFS TWO TIMES A DAY
     Route: 055
     Dates: start: 201904
  8. SYMBICORT [Suspect]
     Active Substance: BUDESONIDE\FORMOTEROL FUMARATE DIHYDRATE
     Indication: ASTHMA
     Dosage: 160/4.5 MCG, TWO PUFFS TWO TIMES A DAY
     Route: 055
     Dates: start: 201907
  9. IPRAPROPIUM [Concomitant]
     Indication: CHRONIC OBSTRUCTIVE PULMONARY DISEASE
     Dosage: 0.5 MG/3MG/3ML EVERY 5-6 HOURS AS REQUIRED
     Route: 055
     Dates: start: 202001

REACTIONS (1)
  - Dyspnoea [Unknown]

NARRATIVE: CASE EVENT DATE: 20200429
